FAERS Safety Report 16449032 (Version 1)
Quarter: 2019Q2

REPORT INFORMATION
  Report Type: Spontaneous
  Country: NL (occurrence: NL)
  Receive Date: 20190619
  Receipt Date: 20190619
  Transmission Date: 20190711
  Serious: Yes (Life-Threatening, Hospitalization, Other)
  Sender: FDA-Public Use
  Company Number: NL-DRREDDYS-USA/NET/19/0111123

PATIENT
  Age: 68 Year
  Sex: Male

DRUGS (6)
  1. BUMETANIDE. [Concomitant]
     Active Substance: BUMETANIDE
     Indication: PRODUCT USED FOR UNKNOWN INDICATION
     Dosage: FOR A FEW MONTHS
     Route: 065
  2. SIMVASTATIN. [Suspect]
     Active Substance: SIMVASTATIN
     Indication: PRODUCT USED FOR UNKNOWN INDICATION
  3. IMATINIB MESYLATE TABLETS [Suspect]
     Active Substance: IMATINIB MESYLATE
     Indication: CHRONIC MYELOID LEUKAEMIA
     Dosage: INITIAL DOSE OF 400 MG
     Route: 065
  4. ALFACALCIDOL [Interacting]
     Active Substance: ALFACALCIDOL
     Indication: PRODUCT USED FOR UNKNOWN INDICATION
     Route: 065
  5. CLOPIDOGREL [Suspect]
     Active Substance: CLOPIDOGREL BISULFATE
     Indication: PRODUCT USED FOR UNKNOWN INDICATION
     Dosage: FOR A FEW MONTHS
  6. IMATINIB MESYLATE TABLETS [Interacting]
     Active Substance: IMATINIB MESYLATE
     Dosage: MAINTENANCE THERAPY
     Route: 065

REACTIONS (5)
  - Drug interaction [Recovered/Resolved]
  - Organising pneumonia [Recovered/Resolved]
  - Interstitial lung disease [Recovered/Resolved]
  - Idiopathic interstitial pneumonia [Recovered/Resolved]
  - Pulmonary toxicity [Recovered/Resolved]
